FAERS Safety Report 7657412-2 (Version None)
Quarter: 2011Q3

REPORT INFORMATION
  Report Type: 
  Country: None (occurrence: None)
  Receive Date: 20110804
  Receipt Date: 20110615
  Transmission Date: 20111222
  Serious: No
  Sender: FDA-Public Use
  Company Number: US-ASTRAZENECA-2011SE36444

PATIENT
  Age: 54 Year
  Sex: Male

DRUGS (4)
  1. LYRICA [Concomitant]
  2. VANDETANIB [Suspect]
     Indication: THYROID CANCER
     Route: 048
     Dates: start: 20110506
  3. SYNTHROID [Concomitant]
  4. MORPHINE SULFATE [Concomitant]

REACTIONS (2)
  - BACK PAIN [None]
  - RASH [None]
